FAERS Safety Report 9682198 (Version 1)
Quarter: 2013Q4

REPORT INFORMATION
  Report Type: Report from Study
  Country: US (occurrence: US)
  Receive Date: 20131111
  Receipt Date: 20131111
  Transmission Date: 20140711
  Serious: Yes (Death)
  Sender: FDA-Public Use
  Company Number: US-ROCHE-1302615

PATIENT
  Age: 64 Year
  Sex: Male

DRUGS (1)
  1. XELODA [Suspect]
     Indication: HEPATIC CANCER
     Dosage: 14 DAYS ON 7 DAYS OFF
     Route: 065

REACTIONS (1)
  - Death [Fatal]
